FAERS Safety Report 11886104 (Version 1)
Quarter: 2016Q1

REPORT INFORMATION
  Report Type: Spontaneous
  Country: US (occurrence: US)
  Receive Date: 20160104
  Receipt Date: 20160104
  Transmission Date: 20160526
  Serious: No
  Sender: FDA-Public Use
  Company Number: US-PFIZER INC-2015451186

PATIENT
  Sex: Female

DRUGS (2)
  1. CELECOXIB. [Suspect]
     Active Substance: CELECOXIB
     Indication: PAIN
     Dosage: UNK, AS NEEDED
     Dates: start: 201110
  2. MELOXICAM. [Suspect]
     Active Substance: MELOXICAM
     Indication: MYALGIA

REACTIONS (1)
  - Urticaria chronic [Unknown]
